FAERS Safety Report 4573990-4 (Version None)
Quarter: 2005Q1

REPORT INFORMATION
  Report Type: 
  Country: None (occurrence: None)
  Receive Date: 20050204
  Receipt Date: 20050121
  Transmission Date: 20050727
  Serious: Yes (Other)
  Sender: FDA-Public Use
  Company Number: 2005001511

PATIENT
  Age: 52 Year
  Sex: Female
  Weight: 68.0396 kg

DRUGS (1)
  1. DIFLUCAN [Suspect]
     Indication: VAGINAL MYCOSIS
     Dosage: 4 YEARS AGO
     Dates: end: 20041223

REACTIONS (11)
  - BLISTER [None]
  - ERYTHEMA [None]
  - FLUSHING [None]
  - HYPERSENSITIVITY [None]
  - NEUROPATHY [None]
  - PAIN [None]
  - PRURITUS GENERALISED [None]
  - RASH MACULAR [None]
  - SKIN BURNING SENSATION [None]
  - STEVENS-JOHNSON SYNDROME [None]
  - URTICARIA [None]
